FAERS Safety Report 10892072 (Version 1)
Quarter: 2015Q1

REPORT INFORMATION
  Report Type: Spontaneous
  Country: IT (occurrence: IT)
  Receive Date: 20150306
  Receipt Date: 20150306
  Transmission Date: 20150721
  Serious: Yes (Hospitalization)
  Sender: FDA-Public Use
  Company Number: IT-JNJFOC-20150214058

PATIENT
  Age: 73 Year
  Sex: Female

DRUGS (9)
  1. CEFTRIAXONE. [Concomitant]
     Active Substance: CEFTRIAXONE
     Indication: PRODUCT USED FOR UNKNOWN INDICATION
     Route: 030
  2. LASIX [Concomitant]
     Active Substance: FUROSEMIDE
     Indication: PRODUCT USED FOR UNKNOWN INDICATION
     Route: 048
  3. LARGACTIL [Interacting]
     Active Substance: CHLORPROMAZINE
     Indication: BIPOLAR DISORDER
     Route: 048
     Dates: start: 20140101, end: 20150119
  4. HALDOL [Interacting]
     Active Substance: HALOPERIDOL
     Indication: BIPOLAR DISORDER
     Route: 048
     Dates: start: 20140101, end: 20150119
  5. AKINETON [Interacting]
     Active Substance: BIPERIDEN HYDROCHLORIDE
     Indication: BIPOLAR DISORDER
     Route: 048
     Dates: start: 20140101, end: 20150119
  6. NOZINAN [Interacting]
     Active Substance: LEVOMEPROMAZINE
     Indication: BIPOLAR DISORDER
     Route: 048
     Dates: start: 20140101, end: 20150119
  7. RISPERDAL [Suspect]
     Active Substance: RISPERIDONE
     Indication: BIPOLAR DISORDER
     Route: 048
     Dates: start: 20140101, end: 20150119
  8. EUTIROX [Concomitant]
     Active Substance: LEVOTHYROXINE SODIUM
     Indication: PRODUCT USED FOR UNKNOWN INDICATION
     Route: 048
  9. CLEXANE [Concomitant]
     Active Substance: ENOXAPARIN SODIUM
     Indication: PRODUCT USED FOR UNKNOWN INDICATION
     Route: 058

REACTIONS (3)
  - Drug interaction [Unknown]
  - Sopor [Unknown]
  - Hyperlipasaemia [Unknown]

NARRATIVE: CASE EVENT DATE: 20150119
